FAERS Safety Report 10770147 (Version 4)
Quarter: 2015Q1

REPORT INFORMATION
  Report Type: Spontaneous
  Country: US (occurrence: US)
  Receive Date: 20150206
  Receipt Date: 20150318
  Transmission Date: 20150721
  Serious: Yes (Death, Hospitalization)
  Sender: FDA-Public Use
  Company Number: US-ACTELION-A-NJ2015-112475

PATIENT
  Age: 41 Year
  Sex: Female

DRUGS (13)
  1. PRAVASTATIN [Concomitant]
     Active Substance: PRAVASTATIN\PRAVASTATIN SODIUM
  2. TYVASO [Concomitant]
     Active Substance: TREPROSTINIL
  3. BUMETANIDE. [Concomitant]
     Active Substance: BUMETANIDE
  4. COREG [Concomitant]
     Active Substance: CARVEDILOL
  5. VENTAVIS [Suspect]
     Active Substance: ILOPROST
     Indication: PULMONARY ARTERIAL HYPERTENSION
     Dosage: UNK
     Route: 055
     Dates: end: 20141216
  6. COUMADIN [Concomitant]
     Active Substance: WARFARIN SODIUM
  7. PREDNISONE. [Concomitant]
     Active Substance: PREDNISONE
  8. SPIRONOLACTONE. [Concomitant]
     Active Substance: SPIRONOLACTONE
  9. TRACLEER [Suspect]
     Active Substance: BOSENTAN\BOSENTAN MONOHYDRATE
     Indication: PULMONARY ARTERIAL HYPERTENSION
     Dosage: 125 MG, BID
     Route: 048
     Dates: end: 20141216
  10. QVAR [Concomitant]
     Active Substance: BECLOMETHASONE DIPROPIONATE
  11. LISINOPRIL. [Concomitant]
     Active Substance: LISINOPRIL
  12. SILDENAFIL. [Concomitant]
     Active Substance: SILDENAFIL
  13. RITUXAN [Concomitant]
     Active Substance: RITUXIMAB

REACTIONS (7)
  - Apnoea [Unknown]
  - Right ventricular failure [Fatal]
  - Respiratory distress [Unknown]
  - Respiratory failure [Fatal]
  - Influenza [Unknown]
  - Snoring [Unknown]
  - Circulatory collapse [Fatal]

NARRATIVE: CASE EVENT DATE: 20141215
